FAERS Safety Report 4414970-9 (Version None)
Quarter: 2004Q3

REPORT INFORMATION
  Report Type: 
  Country: None (occurrence: None)
  Receive Date: 20040802
  Receipt Date: 20040802
  Transmission Date: 20050211
  Serious: Yes (Hospitalization)
  Sender: FDA-Public Use
  Company Number: None

PATIENT
  Age: 71 Year
  Sex: Female
  Weight: 53.0709 kg

DRUGS (14)
  1. DOCETAXEL  75 MG  AVENTIS [Suspect]
     Indication: NON-SMALL CELL LUNG CANCER
     Dosage: 115 MG  QWK X 7 IV
     Route: 042
     Dates: start: 20040720
  2. CARBOPLATIN [Suspect]
     Indication: NON-SMALL CELL LUNG CANCER
     Dosage: 583 MG  QWK X 7 IV
     Route: 042
     Dates: start: 20040720
  3. CELEBREX [Concomitant]
  4. ACYCLOVIR [Concomitant]
  5. ATARAX [Concomitant]
  6. TRIAMCINOLONE CREAM [Concomitant]
  7. SENNA [Concomitant]
  8. DESONIDE [Concomitant]
  9. PROTONIX [Concomitant]
  10. AQUAPHOR [Concomitant]
  11. COUMADIN [Concomitant]
  12. MULTI-VITAMIN [Concomitant]
  13. GLITAZOL [Concomitant]
  14. COLACE [Concomitant]

REACTIONS (2)
  - FEBRILE NEUTROPENIA [None]
  - LEUKOPENIA [None]
